FAERS Safety Report 9538741 (Version 1)
Quarter: 2013Q3

REPORT INFORMATION
  Report Type: Spontaneous
  Country: US (occurrence: US)
  Receive Date: 20130920
  Receipt Date: 20130920
  Transmission Date: 20140515
  Serious: Yes (Other)
  Sender: FDA-Public Use
  Company Number: PHEH2013US019543

PATIENT
  Sex: Female

DRUGS (1)
  1. VIVELLE DOT [Suspect]
     Dosage: 0.05 MG, UNK
     Route: 062
     Dates: start: 2007

REACTIONS (2)
  - Rheumatoid arthritis [Unknown]
  - Blood cholesterol abnormal [Unknown]
